FAERS Safety Report 5534470-2 (Version None)
Quarter: 2007Q4

REPORT INFORMATION
  Report Type: 
  Country: None (occurrence: None)
  Receive Date: 20071119
  Receipt Date: 20070809
  Transmission Date: 20080405
  Serious: No
  Sender: FDA-Public Use
  Company Number: TPA2007A01552

PATIENT
  Age: 74 Year
  Sex: Female
  Weight: 54.4316 kg

DRUGS (9)
  1. ROZEREM [Suspect]
     Indication: INSOMNIA
     Dosage: 8 MG, QHS, PER ORAL
     Route: 048
     Dates: start: 20070718, end: 20070722
  2. RESTORIL [Suspect]
  3. CELEBREX [Concomitant]
  4. UNKNOWN THYROID MEDICATION(THYROID THERAPY) [Concomitant]
  5. POTASSIUM (POTASSIUM) [Concomitant]
  6. ESTRADIOL [Concomitant]
  7. BENAZEPRIL HCL [Concomitant]
  8. PROPRANOLOL [Concomitant]
  9. ALLEGRA (FEXOFENADINE HYDROCHLORIDE) [Concomitant]

REACTIONS (3)
  - HALLUCINATION [None]
  - INITIAL INSOMNIA [None]
  - MIDDLE INSOMNIA [None]
